FAERS Safety Report 8380501-4 (Version None)
Quarter: 2012Q2

REPORT INFORMATION
  Report Type: 
  Country: None (occurrence: None)
  Receive Date: 20120523
  Receipt Date: 20120517
  Transmission Date: 20120825
  Serious: Yes (Hospitalization)
  Sender: FDA-Public Use
  Company Number: JP-GLAXOSMITHKLINE-B0802598A

PATIENT
  Sex: Male

DRUGS (7)
  1. FLIVASTATIN SODIUM [Concomitant]
     Dosage: 75MG PER DAY
     Route: 048
  2. TENORMIN [Concomitant]
     Dosage: 25MG PER DAY
     Route: 048
  3. PROCYLIN [Concomitant]
     Dosage: 80MCG PER DAY
     Route: 048
  4. TRANDOLAPRIL [Concomitant]
     Dosage: .5MG PER DAY
     Route: 048
  5. DUTASTERIDE [Suspect]
     Indication: BENIGN PROSTATIC HYPERPLASIA
     Dosage: .5MG PER DAY
     Route: 048
     Dates: start: 20110715, end: 20111113
  6. PLETAL [Concomitant]
     Dosage: 200MG PER DAY
     Route: 048
  7. ASPIRIN [Concomitant]
     Dosage: 200MG PER DAY
     Route: 048

REACTIONS (4)
  - INTERSTITIAL LUNG DISEASE [None]
  - DYSPNOEA [None]
  - LYMPHOCYTE STIMULATION TEST POSITIVE [None]
  - DIZZINESS [None]
